FAERS Safety Report 15492144 (Version 1)
Quarter: 2018Q4

REPORT INFORMATION
  Report Type: Other
  Country: CA (occurrence: CA)
  Receive Date: 20181012
  Receipt Date: 20181012
  Transmission Date: 20190205
  Serious: Yes (Other)
  Sender: FDA-Public Use
  Company Number: CA-APOTEX-2018AP021939

PATIENT
  Sex: Female

DRUGS (1)
  1. AMLODIPINE [Suspect]
     Active Substance: AMLODIPINE BESYLATE
     Indication: HYPERTENSION
     Dosage: 2.5 MG, QD
     Route: 065

REACTIONS (5)
  - Impaired driving ability [Unknown]
  - Malaise [Unknown]
  - Hypersensitivity [Unknown]
  - Balance disorder [Unknown]
  - Middle ear effusion [Unknown]
